FAERS Safety Report 18927344 (Version 1)
Quarter: 2021Q1

REPORT INFORMATION
  Report Type: Spontaneous
  Country: US (occurrence: US)
  Receive Date: 20210222
  Receipt Date: 20210222
  Transmission Date: 20210420
  Serious: Yes (Other)
  Sender: FDA-Public Use
  Company Number: None

PATIENT
  Age: 32 Year
  Sex: Female
  Weight: 83.25 kg

DRUGS (6)
  1. MELATONIN [Concomitant]
     Active Substance: MELATONIN
  2. NEXPLANON [Suspect]
     Active Substance: ETONOGESTREL
     Indication: CONTRACEPTION
     Dosage: ?          QUANTITY:1 SUB DERMAL IMPLANT;OTHER FREQUENCY:REPLACE EVERY 3 YE;?
     Route: 058
     Dates: start: 20201216
  3. LACTAID [Concomitant]
     Active Substance: LACTASE
  4. IMODIUM [Concomitant]
     Active Substance: LOPERAMIDE HYDROCHLORIDE
  5. TUMS [Concomitant]
     Active Substance: CALCIUM CARBONATE
  6. NEXPLANON [Suspect]
     Active Substance: ETONOGESTREL
     Indication: MENTAL DISORDER
     Dosage: ?          QUANTITY:1 SUB DERMAL IMPLANT;OTHER FREQUENCY:REPLACE EVERY 3 YE;?
     Route: 058
     Dates: start: 20201216

REACTIONS (1)
  - Injection site urticaria [None]

NARRATIVE: CASE EVENT DATE: 20210222
